FAERS Safety Report 12330759 (Version 1)
Quarter: 2016Q2

REPORT INFORMATION
  Report Type: Spontaneous
  Country: US (occurrence: US)
  Receive Date: 20160504
  Receipt Date: 20160504
  Transmission Date: 20160815
  Serious: No
  Sender: FDA-Public Use
  Company Number: US-BAYER-2016-079875

PATIENT
  Age: 28 Year
  Sex: Female
  Weight: 114.74 kg

DRUGS (4)
  1. ALEVE PM [Suspect]
     Active Substance: DIPHENHYDRAMINE HYDROCHLORIDE\NAPROXEN SODIUM
     Indication: OROPHARYNGEAL PAIN
     Dosage: 2 DF, ONCE
     Dates: start: 20160424, end: 20160424
  2. FOLIC ACID. [Concomitant]
     Active Substance: FOLIC ACID
  3. LAMOTRIGINE. [Concomitant]
     Active Substance: LAMOTRIGINE
  4. ANTIBIOTIC [CHLORAMPHENICOL] [Concomitant]

REACTIONS (2)
  - Tremor [Recovered/Resolved]
  - Product use issue [None]

NARRATIVE: CASE EVENT DATE: 20160424
